FAERS Safety Report 10927228 (Version 3)
Quarter: 2015Q3

REPORT INFORMATION
  Report Type: Spontaneous
  Country: US (occurrence: US)
  Receive Date: 20150318
  Receipt Date: 20150721
  Transmission Date: 20151125
  Serious: No
  Sender: FDA-Public Use
  Company Number: US-GILEAD-2015-0142337

PATIENT
  Sex: Male

DRUGS (1)
  1. CAYSTON [Suspect]
     Active Substance: AZTREONAM
     Indication: PRODUCT USED FOR UNKNOWN INDICATION
     Dosage: UNK
     Route: 055

REACTIONS (2)
  - Off label use [Unknown]
  - Productive cough [Unknown]
